FAERS Safety Report 6579930-0 (Version None)
Quarter: 2010Q1

REPORT INFORMATION
  Report Type: 
  Country: None (occurrence: None)
  Receive Date: 20100212
  Receipt Date: 20100202
  Transmission Date: 20100710
  Serious: Yes (Hospitalization, Other)
  Sender: FDA-Public Use
  Company Number: US-WYE-H13306910

PATIENT
  Sex: Female
  Weight: 108.96 kg

DRUGS (2)
  1. PRISTIQ [Suspect]
     Indication: DEPRESSION
     Route: 048
     Dates: start: 20091101, end: 20100101
  2. TRAZODONE [Suspect]
     Indication: INSOMNIA
     Dosage: UNKNOWN

REACTIONS (12)
  - AGGRESSION [None]
  - AGITATION [None]
  - ANGER [None]
  - ANXIETY [None]
  - DRY MOUTH [None]
  - FEELING ABNORMAL [None]
  - HOMICIDAL IDEATION [None]
  - IMPULSE-CONTROL DISORDER [None]
  - IRRITABILITY [None]
  - PERSONALITY CHANGE [None]
  - STRESS [None]
  - WEIGHT INCREASED [None]
